FAERS Safety Report 11944545 (Version 1)
Quarter: 2016Q1

REPORT INFORMATION
  Report Type: Spontaneous
  Country: US (occurrence: US)
  Receive Date: 20160125
  Receipt Date: 20160125
  Transmission Date: 20160526
  Serious: No
  Sender: FDA-Public Use
  Company Number: US-UNITED THERAPEUTICS-UNT-2015-014239

PATIENT
  Age: 67 Year
  Sex: Male
  Weight: 93.88 kg

DRUGS (3)
  1. ESBRIET [Concomitant]
     Active Substance: PIRFENIDONE
     Indication: PRODUCT USED FOR UNKNOWN INDICATION
  2. TYVASO [Suspect]
     Active Substance: TREPROSTINIL
     Indication: IDIOPATHIC PULMONARY FIBROSIS
     Dosage: 18-54 ?G, QID
     Dates: start: 20151023
  3. TYVASO [Suspect]
     Active Substance: TREPROSTINIL
     Indication: PULMONARY ARTERIAL HYPERTENSION
     Dosage: UNK

REACTIONS (6)
  - Choking [Unknown]
  - Glossodynia [Unknown]
  - Cough [Unknown]
  - Device issue [Unknown]
  - Dysgeusia [Unknown]
  - Nasopharyngitis [Unknown]

NARRATIVE: CASE EVENT DATE: 201511
